FAERS Safety Report 8165634-X (Version None)
Quarter: 2012Q1

REPORT INFORMATION
  Report Type: 
  Country: None (occurrence: None)
  Receive Date: 20120103
  Receipt Date: 20111103
  Transmission Date: 20120608
  Serious: No
  Sender: FDA-Public Use
  Company Number: AE-2011-002472

PATIENT
  Age: 56 Year
  Sex: Male
  Weight: 97.5234 kg

DRUGS (6)
  1. METOPROLOL TARTRATE [Concomitant]
  2. INCIVEK [Suspect]
     Dosage: 2250 MG (750 MG, 1 IN 8 HR), ORAL
     Route: 048
     Dates: start: 20111014, end: 20111020
  3. RIBAVIRIN [Concomitant]
  4. ALEVE [Concomitant]
  5. PEGASYS [Concomitant]
  6. LOSARTAN POTASSIUM [Concomitant]

REACTIONS (4)
  - PROCTALGIA [None]
  - INFLUENZA LIKE ILLNESS [None]
  - INAPPROPRIATE SCHEDULE OF DRUG ADMINISTRATION [None]
  - ANORECTAL DISCOMFORT [None]
